FAERS Safety Report 19734788 (Version 3)
Quarter: 2021Q3

REPORT INFORMATION
  Report Type: Spontaneous
  Country: US (occurrence: US)
  Receive Date: 20210824
  Receipt Date: 20210824
  Transmission Date: 20211014
  Serious: Yes (Other)
  Sender: FDA-Public Use
  Company Number: US-CELGENEUS-USA-20210805439

PATIENT
  Sex: Female

DRUGS (1)
  1. ZEPOSIA [Suspect]
     Active Substance: OZANIMOD HYDROCHLORIDE
     Indication: MULTIPLE SCLEROSIS
     Dosage: .92 MILLIGRAM
     Route: 048

REACTIONS (6)
  - Headache [Recovering/Resolving]
  - Neck pain [Recovering/Resolving]
  - Fatigue [Recovering/Resolving]
  - Rash [Recovering/Resolving]
  - Musculoskeletal stiffness [Recovering/Resolving]
  - Nausea [Recovering/Resolving]
